FAERS Safety Report 21914377 (Version 1)
Quarter: 2023Q1

REPORT INFORMATION
  Report Type: Spontaneous
  Country: BR (occurrence: BR)
  Receive Date: 20230126
  Receipt Date: 20230126
  Transmission Date: 20230417
  Serious: Yes (Other)
  Sender: FDA-Public Use
  Company Number: BR-drreddys-LIT/BRA/23/0160400

PATIENT
  Age: 35 Year
  Sex: Female

DRUGS (4)
  1. PREGABALIN [Suspect]
     Active Substance: PREGABALIN
     Indication: Bone pain
  2. METHADONE [Suspect]
     Active Substance: METHADONE HYDROCHLORIDE
     Indication: Bone pain
  3. MORPHINE [Suspect]
     Active Substance: MORPHINE
     Indication: Bone pain
  4. DIPYRONE [Suspect]
     Active Substance: DIPYRONE
     Indication: Bone pain

REACTIONS (4)
  - Metastases to bone [Unknown]
  - Osteonecrosis [Unknown]
  - Pain [Recovering/Resolving]
  - Drug ineffective [Unknown]
